FAERS Safety Report 24022770 (Version 1)
Quarter: 2024Q2

REPORT INFORMATION
  Report Type: Report from Study
  Country: US (occurrence: US)
  Receive Date: 20240627
  Receipt Date: 20240627
  Transmission Date: 20240716
  Serious: No
  Sender: FDA-Public Use
  Company Number: US-ROCHE-3545438

PATIENT
  Age: 81 Year
  Sex: Male

DRUGS (16)
  1. VABYSMO [Suspect]
     Active Substance: FARICIMAB\FARICIMAB-SVOA
     Indication: Neovascular age-related macular degeneration
     Route: 065
  2. VABYSMO [Suspect]
     Active Substance: FARICIMAB\FARICIMAB-SVOA
     Indication: Choroidal neovascularisation
  3. AVASTIN [Suspect]
     Active Substance: BEVACIZUMAB
     Indication: Neovascular age-related macular degeneration
     Route: 065
  4. AVASTIN [Suspect]
     Active Substance: BEVACIZUMAB
     Indication: Choroidal neovascularisation
  5. ALFUZOSIN [Concomitant]
     Active Substance: ALFUZOSIN
     Dosage: 10 MG TABLET
  6. ATORVASTATIN [Concomitant]
     Active Substance: ATORVASTATIN
     Dosage: 10 MG TABLET
  7. FINASTERIDE [Concomitant]
     Active Substance: FINASTERIDE
     Dosage: 5 MG TABLET
  8. IBRANCE [Concomitant]
     Active Substance: PALBOCICLIB
     Dosage: 125 MG TABLET
  9. LETROZOLE [Concomitant]
     Active Substance: LETROZOLE
     Dosage: 2.5 MG TABLET
  10. LUPRON [Concomitant]
     Active Substance: LEUPROLIDE ACETATE
  11. PALBOCICLIB [Concomitant]
     Active Substance: PALBOCICLIB
     Dosage: 125 MG TABLET
  12. XGEVA [Concomitant]
     Active Substance: DENOSUMAB
     Dosage: 120 MG/1.7 ML SOLUTION
  13. DORZOLAMIDE\TIMOLOL [Concomitant]
     Active Substance: DORZOLAMIDE\TIMOLOL
     Dosage: 22.3-6.8 MG/ML DROPS, 1 DROP BID IN BOTH EYES
  14. LATANOPROST [Concomitant]
     Active Substance: LATANOPROST
     Dosage: 0.005 % 0 1 DROP IN BOTH EYES NIGHTLY
  15. LIDOCAINE [Concomitant]
     Active Substance: LIDOCAINE
  16. POVIDONE-IODINE [Concomitant]
     Active Substance: POVIDONE-IODINE

REACTIONS (2)
  - Off label use [Unknown]
  - No adverse event [Unknown]
